FAERS Safety Report 13189484 (Version 1)
Quarter: 2017Q1

REPORT INFORMATION
  Report Type: Spontaneous
  Country: FR (occurrence: FR)
  Receive Date: 20170206
  Receipt Date: 20170206
  Transmission Date: 20170428
  Serious: Yes (Hospitalization)
  Sender: FDA-Public Use
  Company Number: FR-PFIZER INC-2017041556

PATIENT
  Age: 54 Year
  Sex: Female

DRUGS (15)
  1. RIVOTRIL [Concomitant]
     Active Substance: CLONAZEPAM
     Dosage: UNK
  2. SANDOSTATIN [Suspect]
     Active Substance: OCTREOTIDE ACETATE
     Indication: CROHN^S DISEASE
     Dosage: 60 UG, DAILY
     Dates: start: 20161221, end: 20161222
  3. AVASTIN [Concomitant]
     Active Substance: BEVACIZUMAB
     Indication: METASTASES TO LUNG
     Dosage: UNK
     Dates: start: 201611
  4. EFFEXOR [Concomitant]
     Active Substance: VENLAFAXINE HYDROCHLORIDE
     Dosage: UNK
  5. TOCO [Concomitant]
     Active Substance: UNSPECIFIED INGREDIENT
     Dosage: UNK
  6. SKENAN [Concomitant]
     Active Substance: MORPHINE SULFATE
     Indication: ABDOMINAL PAIN
     Dosage: UNK
  7. PARACETAMOL [Concomitant]
     Active Substance: ACETAMINOPHEN
     Dosage: UNK
  8. TAXOL [Concomitant]
     Active Substance: PACLITAXEL
     Indication: METASTASES TO LUNG
     Dosage: UNK
     Dates: start: 201611
  9. TAZOCILLINE [Suspect]
     Active Substance: PIPERACILLIN SODIUM\TAZOBACTAM SODIUM
     Indication: INFECTION
     Dosage: UNK
     Dates: start: 20161219, end: 20161222
  10. INEXIUM /01479302/ [Suspect]
     Active Substance: ESOMEPRAZOLE MAGNESIUM
     Indication: PROPHYLAXIS
     Dosage: 40 MG, 2X/DAY
     Dates: start: 20161221, end: 20161222
  11. STILNOX [Concomitant]
     Active Substance: ZOLPIDEM TARTRATE
     Dosage: UNK
  12. ACTIQ [Concomitant]
     Active Substance: FENTANYL CITRATE
     Indication: ABDOMINAL PAIN
     Dosage: UNK
  13. AMIKACIN SULFATE. [Suspect]
     Active Substance: AMIKACIN SULFATE
     Indication: INFECTION
     Dosage: UNK, SINGLE
     Dates: start: 20161221, end: 20161221
  14. SPASFON /00765801/ [Concomitant]
     Active Substance: PHLOROGLUCINOL\1,3,5-TRIMETHOXYBENZENE
     Dosage: UNK
  15. CARBOPLATINE [Concomitant]
     Active Substance: CARBOPLATIN
     Indication: METASTASES TO LUNG
     Dosage: UNK
     Dates: start: 201611

REACTIONS (1)
  - Pancreatitis acute [Recovered/Resolved]

NARRATIVE: CASE EVENT DATE: 20161222
